FAERS Safety Report 8050925-3 (Version None)
Quarter: 2012Q1

REPORT INFORMATION
  Report Type: 
  Country: None (occurrence: None)
  Receive Date: 20120117
  Receipt Date: 20120110
  Transmission Date: 20120608
  Serious: Yes (Death)
  Sender: FDA-Public Use
  Company Number: PHEH2012US001267

PATIENT
  Sex: Male

DRUGS (1)
  1. GLEEVEC [Suspect]
     Dosage: 1000 MG, QD
     Route: 048

REACTIONS (2)
  - SEPSIS [None]
  - GRAFT VERSUS HOST DISEASE [None]
